FAERS Safety Report 5646636-1 (Version None)
Quarter: 2008Q1

REPORT INFORMATION
  Report Type: 
  Country: None (occurrence: None)
  Receive Date: 20080303
  Receipt Date: 20080222
  Transmission Date: 20080703
  Serious: Yes (Hospitalization, Disabling)
  Sender: FDA-Public Use
  Company Number: PHHO2008DE02686

PATIENT
  Age: 55 Year
  Sex: Female

DRUGS (1)
  1. *CGP 57148B* [Suspect]
     Indication: CHRONIC MYELOID LEUKAEMIA
     Dosage: 400 MG,
     Route: 048
     Dates: start: 20080212

REACTIONS (3)
  - APHASIA [None]
  - ISCHAEMIC STROKE [None]
  - THROMBOCYTHAEMIA [None]
